FAERS Safety Report 19154073 (Version 1)
Quarter: 2021Q2

REPORT INFORMATION
  Report Type: Spontaneous
  Country: US (occurrence: US)
  Receive Date: 20210419
  Receipt Date: 20210419
  Transmission Date: 20210717
  Serious: No
  Sender: FDA-Public Use
  Company Number: US-ORGANON-2102USA002207

PATIENT
  Age: 24 Year
  Sex: Female
  Weight: 91.6 kg

DRUGS (1)
  1. NEXPLANON [Suspect]
     Active Substance: ETONOGESTREL
     Indication: CONTRACEPTION
     Dosage: 1 IMPLANT OF 68 MG, ONCE, LEFT ARM
     Route: 059
     Dates: start: 20201117, end: 20201210

REACTIONS (3)
  - Device kink [Recovered/Resolved]
  - Wrong technique in device usage process [Unknown]
  - Device placement issue [Recovered/Resolved]

NARRATIVE: CASE EVENT DATE: 20201117
